FAERS Safety Report 23987053 (Version 1)
Quarter: 2024Q2

REPORT INFORMATION
  Report Type: Spontaneous
  Country: US (occurrence: US)
  Receive Date: 20240618
  Receipt Date: 20240618
  Transmission Date: 20240716
  Serious: No
  Sender: FDA-Public Use
  Company Number: US-BRISTOL-MYERS SQUIBB COMPANY-2024-097217

PATIENT
  Age: 68 Year
  Sex: Male

DRUGS (2)
  1. ABRAXANE [Suspect]
     Active Substance: PACLITAXEL
     Indication: Malignant respiratory tract neoplasm
     Route: 042
  2. ABRAXANE [Suspect]
     Active Substance: PACLITAXEL

REACTIONS (1)
  - Off label use [Unknown]
